FAERS Safety Report 16064643 (Version 1)
Quarter: 2019Q1

REPORT INFORMATION
  Report Type: Spontaneous
  Country: US (occurrence: US)
  Receive Date: 20190312
  Receipt Date: 20190312
  Transmission Date: 20190418
  Serious: Yes (Other)
  Sender: FDA-Public Use
  Company Number: US-GILEAD-2019-0395186

PATIENT
  Age: 70 Year
  Sex: Male

DRUGS (1)
  1. YESCARTA [Suspect]
     Active Substance: AXICABTAGENE CILOLEUCEL
     Indication: B-CELL LYMPHOMA
     Dosage: SINGLE
     Route: 042
     Dates: start: 201801, end: 201801

REACTIONS (7)
  - Cytokine release syndrome [Unknown]
  - Mental status changes [Unknown]
  - Herpes zoster disseminated [Unknown]
  - Cytopenia [Unknown]
  - Coma [Unknown]
  - Neurotoxicity [Unknown]
  - Pyrexia [Not Recovered/Not Resolved]

NARRATIVE: CASE EVENT DATE: 2018
